FAERS Safety Report 25424583 (Version 1)
Quarter: 2025Q2

REPORT INFORMATION
  Report Type: Spontaneous
  Country: US (occurrence: None)
  Receive Date: 20250611
  Receipt Date: 20250611
  Transmission Date: 20250716
  Serious: Yes (Other)
  Sender: FDA-CTU
  Company Number: None

PATIENT
  Age: 52 Year
  Sex: Female

DRUGS (2)
  1. NICODERM CQ [Suspect]
     Active Substance: NICOTINE
     Indication: Smoking cessation therapy
     Dosage: FREQUENCY : DAILY;?
     Route: 062
     Dates: start: 20250520
  2. HABITROL [Suspect]
     Active Substance: NICOTINE
     Indication: Smoking cessation therapy
     Route: 048
     Dates: start: 20250520

REACTIONS (3)
  - Fall [None]
  - Humerus fracture [None]
  - Multiple fractures [None]

NARRATIVE: CASE EVENT DATE: 20250603
